FAERS Safety Report 21381130 (Version 3)
Quarter: 2023Q1

REPORT INFORMATION
  Report Type: Report from Study
  Country: US (occurrence: US)
  Receive Date: 20220927
  Receipt Date: 20230210
  Transmission Date: 20230418
  Serious: Yes (Other)
  Sender: FDA-Public Use
  Company Number: US-ABBVIE-22K-163-4518673-00

PATIENT
  Sex: Female

DRUGS (5)
  1. IMBRUVICA [Suspect]
     Active Substance: IBRUTINIB
     Indication: Chronic lymphocytic leukaemia
     Route: 048
  2. IMBRUVICA [Suspect]
     Active Substance: IBRUTINIB
     Indication: Chronic lymphocytic leukaemia
     Route: 048
     Dates: start: 20170401
  3. MODERNA COVID-19 VACCINE [Concomitant]
     Active Substance: ELASOMERAN
     Indication: COVID-19 immunisation
     Dosage: ONE IN ONCE
     Route: 030
     Dates: start: 202104, end: 202104
  4. MODERNA COVID-19 VACCINE [Concomitant]
     Active Substance: ELASOMERAN
     Indication: COVID-19 immunisation
     Dosage: ONE IN ONCE
     Route: 030
     Dates: start: 20210307, end: 20210307
  5. MODERNA COVID-19 VACCINE [Concomitant]
     Active Substance: ELASOMERAN
     Indication: COVID-19 immunisation
     Dosage: 3RD DOSE, BOOSTER?ONE IN ONCE
     Route: 030
     Dates: start: 20210909, end: 20210909

REACTIONS (16)
  - Skin angiosarcoma [Unknown]
  - Illness [Unknown]
  - Stress [Unknown]
  - Malignant melanoma [Recovering/Resolving]
  - COVID-19 [Recovered/Resolved]
  - Breast cancer female [Unknown]
  - Liver disorder [Unknown]
  - Renal disorder [Unknown]
  - Skin disorder [Unknown]
  - Lung disorder [Unknown]
  - Surgery [Recovering/Resolving]
  - Visual impairment [Unknown]
  - Fatigue [Unknown]
  - Cataract [Unknown]
  - Melanocytic naevus [Unknown]
  - Lymphoedema [Unknown]

NARRATIVE: CASE EVENT DATE: 20190101
